FAERS Safety Report 18381157 (Version 1)
Quarter: 2020Q4

REPORT INFORMATION
  Report Type: Spontaneous
  Country: US (occurrence: US)
  Receive Date: 20201014
  Receipt Date: 20201014
  Transmission Date: 20210114
  Serious: Yes (Hospitalization)
  Sender: FDA-Public Use
  Company Number: US-MYLANLABS-2020M1086397

PATIENT
  Age: 54 Year
  Sex: Male

DRUGS (3)
  1. TICAGRELOR. [Interacting]
     Active Substance: TICAGRELOR
     Indication: DRUG THERAPY
     Dosage: UNK
     Route: 065
  2. CLOPIDOGREL [Concomitant]
     Active Substance: CLOPIDOGREL BISULFATE
     Indication: PRODUCT USED FOR UNKNOWN INDICATION
     Dosage: UNK
     Route: 065
  3. ATORVASTATIN [Suspect]
     Active Substance: ATORVASTATIN
     Indication: HYPERLIPIDAEMIA
     Dosage: 40 MILLIGRAM, QD
     Route: 065

REACTIONS (11)
  - Myopathy [Recovered/Resolved]
  - Drug interaction [Recovered/Resolved]
  - Subarachnoid haemorrhage [Recovering/Resolving]
  - Gait disturbance [Recovered/Resolved]
  - Transaminases increased [Recovered/Resolved]
  - Fall [Recovered/Resolved]
  - Muscle necrosis [Recovered/Resolved]
  - Dyspnoea exertional [Recovered/Resolved]
  - Haematoma [Recovering/Resolving]
  - Autoimmune disorder [Recovered/Resolved]
  - Dysphagia [Recovered/Resolved]
